FAERS Safety Report 6644609-3 (Version None)
Quarter: 2010Q1

REPORT INFORMATION
  Report Type: 
  Country: None (occurrence: None)
  Receive Date: 20100317
  Receipt Date: 20100303
  Transmission Date: 20100710
  Serious: Yes (Disabling)
  Sender: FDA-Public Use
  Company Number: 008450

PATIENT
  Age: 34 Year
  Sex: Female

DRUGS (2)
  1. ALPROSTADIL [Suspect]
  2. PREDNISOLONE [Suspect]
     Dosage: (60 MG QD)

REACTIONS (8)
  - ARTERIAL OCCLUSIVE DISEASE [None]
  - ARTERIAL THROMBOSIS [None]
  - FINGER AMPUTATION [None]
  - GANGRENE [None]
  - HAEMOGLOBIN DECREASED [None]
  - RESPIRATORY RATE INCREASED [None]
  - STREPTOCOCCUS TEST POSITIVE [None]
  - VASCULITIS NECROTISING [None]
